FAERS Safety Report 4543408-6 (Version None)
Quarter: 2005Q1

REPORT INFORMATION
  Report Type: 
  Country: None (occurrence: None)
  Receive Date: 20050103
  Receipt Date: 20030605
  Transmission Date: 20050727
  Serious: Yes (Disabling, Other)
  Sender: FDA-Public Use
  Company Number: US-MERCK-0306USA00689

PATIENT
  Age: 44 Year
  Sex: Female

DRUGS (5)
  1. VIOXX [Suspect]
     Indication: ARTHRITIS
     Route: 048
     Dates: start: 20010201, end: 20010201
  2. VIOXX [Suspect]
     Route: 048
     Dates: start: 20010101, end: 20011001
  3. GLUCOPHAGE [Concomitant]
     Route: 065
  4. GLUCOPHAGE [Concomitant]
     Route: 065
  5. GLUCOPHAGE [Concomitant]
     Route: 065

REACTIONS (11)
  - ADNEXA UTERI PAIN [None]
  - ADVERSE EVENT [None]
  - ARTHRALGIA [None]
  - BACK PAIN [None]
  - CATARACT [None]
  - DIARRHOEA [None]
  - HEADACHE [None]
  - JOINT CREPITATION [None]
  - OSTEOARTHRITIS [None]
  - SCIATICA [None]
  - VARICOSE VEIN [None]
